FAERS Safety Report 12643209 (Version 1)
Quarter: 2016Q3

REPORT INFORMATION
  Report Type: Spontaneous
  Country: US (occurrence: US)
  Receive Date: 20160811
  Receipt Date: 20160811
  Transmission Date: 20161109
  Serious: No
  Sender: FDA-Public Use
  Company Number: US-BEH-2016072247

PATIENT
  Sex: Female
  Weight: 30.39 kg

DRUGS (45)
  1. HIZENTRA [Suspect]
     Active Substance: HUMAN IMMUNOGLOBULIN G
     Indication: IMMUNODEFICIENCY COMMON VARIABLE
     Dosage: 4 G, QW
     Route: 058
     Dates: start: 20110706
  2. AUGMENTIN [Concomitant]
     Active Substance: AMOXICILLIN\CLAVULANATE POTASSIUM
  3. BACLOFEN. [Concomitant]
     Active Substance: BACLOFEN
  4. TOBRAMYCIN. [Concomitant]
     Active Substance: TOBRAMYCIN
  5. VALIUM [Concomitant]
     Active Substance: DIAZEPAM
  6. BISACODYL. [Concomitant]
     Active Substance: BISACODYL
  7. LACRI-LUBE [Concomitant]
  8. ACETAMINOPHEN. [Concomitant]
     Active Substance: ACETAMINOPHEN
  9. BENADRYL [Concomitant]
     Active Substance: DIPHENHYDRAMINE HYDROCHLORIDE
  10. NYSTATIN. [Concomitant]
     Active Substance: NYSTATIN
  11. GLYCERIN                           /00200601/ [Concomitant]
     Active Substance: GLYCERIN
  12. DIPHENHYDRAMINE. [Concomitant]
     Active Substance: DIPHENHYDRAMINE
  13. PULMICORT TURBUHALER [Concomitant]
     Active Substance: BUDESONIDE
  14. ZINC [Concomitant]
     Active Substance: ZINC\ZINC CHLORIDE
  15. ARTIFICIAL TEARS                   /00445101/ [Concomitant]
  16. VALACYCLOVIR [Concomitant]
     Active Substance: VALACYCLOVIR HYDROCHLORIDE
  17. EPINEPHRINE. [Concomitant]
     Active Substance: EPINEPHRINE
  18. MIRALAX [Concomitant]
     Active Substance: POLYETHYLENE GLYCOL 3350
  19. MUPIROCIN. [Concomitant]
     Active Substance: MUPIROCIN
  20. HYDROCORTISONE. [Concomitant]
     Active Substance: HYDROCORTISONE
  21. OFLOXACIN. [Concomitant]
     Active Substance: OFLOXACIN
  22. ACETIC ACID. [Concomitant]
     Active Substance: ACETIC ACID
  23. EPIPEN [Concomitant]
     Active Substance: EPINEPHRINE
  24. CIPRODEX                           /00697202/ [Concomitant]
  25. TEGRETOL [Concomitant]
     Active Substance: CARBAMAZEPINE
  26. CLONAZEPAM. [Concomitant]
     Active Substance: CLONAZEPAM
  27. RISPERIDONE. [Concomitant]
     Active Substance: RISPERIDONE
  28. NASONEX [Concomitant]
     Active Substance: MOMETASONE FUROATE
  29. FLUORIDE                           /00168201/ [Concomitant]
     Active Substance: SODIUM FLUORIDE
  30. PREVACID [Concomitant]
     Active Substance: LANSOPRAZOLE
  31. XOPENEX [Concomitant]
     Active Substance: LEVALBUTEROL HYDROCHLORIDE
  32. SINGULAIR [Concomitant]
     Active Substance: MONTELUKAST SODIUM
  33. ATROPINE. [Concomitant]
     Active Substance: ATROPINE
  34. ZOVIRAX [Concomitant]
     Active Substance: ACYCLOVIR
  35. OCEAN SALINE NASAL SPRAY [Concomitant]
     Active Substance: SODIUM CHLORIDE
  36. ROBINUL [Concomitant]
     Active Substance: GLYCOPYRROLATE
  37. LMX                                /00033401/ [Concomitant]
  38. BACTRIM [Concomitant]
     Active Substance: SULFAMETHOXAZOLE\TRIMETHOPRIM
  39. ATROVENT [Concomitant]
     Active Substance: IPRATROPIUM BROMIDE
  40. METHOTREXATE. [Concomitant]
     Active Substance: METHOTREXATE
  41. PROBIOTIC                          /06395501/ [Concomitant]
     Active Substance: BIFIDOBACTERIUM ANIMALIS SUBSP. LACTIS
  42. XYZAL [Concomitant]
     Active Substance: LEVOCETIRIZINE DIHYDROCHLORIDE
  43. MAALOX ANTACID [Concomitant]
     Active Substance: ALUMINUM HYDROXIDE\DIMETHICONE\MAGNESIUM HYDROXIDE
  44. FOLIC ACID. [Concomitant]
     Active Substance: FOLIC ACID
  45. CALMOSEPTINE                       /00156514/ [Concomitant]

REACTIONS (2)
  - Tracheitis [Unknown]
  - Ear infection [Unknown]
